FAERS Safety Report 11162198 (Version 1)
Quarter: 2015Q2

REPORT INFORMATION
  Report Type: Spontaneous
  Country: US (occurrence: US)
  Receive Date: 20150604
  Receipt Date: 20150604
  Transmission Date: 20150821
  Serious: No
  Sender: FDA-Public Use
  Company Number: US-SA-2014SA129677

PATIENT
  Age: 82 Year
  Sex: Female

DRUGS (3)
  1. SOLOSTAR [Concomitant]
     Active Substance: DEVICE
     Indication: TYPE 2 DIABETES MELLITUS
     Dates: start: 2011
  2. FLEXPEN [Concomitant]
     Active Substance: UNSPECIFIED INGREDIENT
  3. LANTUS SOLOSTAR [Suspect]
     Active Substance: INSULIN GLARGINE
     Indication: TYPE 2 DIABETES MELLITUS
     Dosage: DOSE-30 U AM + 20 U PM
     Route: 065
     Dates: start: 2011

REACTIONS (3)
  - Sleep apnoea syndrome [Unknown]
  - Memory impairment [Unknown]
  - Drug administration error [Unknown]
